FAERS Safety Report 21584383 (Version 1)
Quarter: 2022Q4

REPORT INFORMATION
  Report Type: Spontaneous
  Country: GB (occurrence: GB)
  Receive Date: 20221111
  Receipt Date: 20221111
  Transmission Date: 20230113
  Serious: Yes (Hospitalization)
  Sender: FDA-Public Use
  Company Number: GB-AMGEN-GBRSP2022188971-SR-01

PATIENT
  Age: 48 Year
  Sex: Male
  Weight: 85 kg

DRUGS (4)
  1. ADALIMUMAB [Suspect]
     Active Substance: ADALIMUMAB
     Indication: Psoriasis
     Dosage: 40 MILLIGRAM, Q2WK
     Route: 065
     Dates: start: 20200127
  2. MODERNA COVID-19 VACCINE [Concomitant]
     Active Substance: ELASOMERAN
     Dosage: UNK
     Dates: start: 20221005, end: 20221005
  3. COVID-19 vaccine [Concomitant]
     Dosage: UNK
     Dates: start: 20210309, end: 20210309
  4. COVID-19 vaccine [Concomitant]
     Dosage: UNK
     Dates: start: 20211107, end: 20211107

REACTIONS (4)
  - Fall [Not Recovered/Not Resolved]
  - Hepatic cyst [Not Recovered/Not Resolved]
  - Liver function test abnormal [Not Recovered/Not Resolved]
  - Contusion [Not Recovered/Not Resolved]

NARRATIVE: CASE EVENT DATE: 20220824
